FAERS Safety Report 5528987-4 (Version None)
Quarter: 2007Q4

REPORT INFORMATION
  Report Type: 
  Country: None (occurrence: None)
  Receive Date: 20071129
  Receipt Date: 20071119
  Transmission Date: 20080405
  Serious: Yes (Other)
  Sender: FDA-Public Use
  Company Number: US-AMGEN-STX250383

PATIENT
  Sex: Female
  Weight: 61.7 kg

DRUGS (17)
  1. ENBREL [Suspect]
     Indication: RHEUMATOID ARTHRITIS
     Route: 058
     Dates: start: 20070101, end: 20070601
  2. PREVACID [Concomitant]
  3. FISH OIL [Concomitant]
  4. SELENIUM [Concomitant]
  5. GARLIC [Concomitant]
  6. FOLIC ACID [Concomitant]
  7. ASPIRIN [Concomitant]
  8. ASCORBIC ACID [Concomitant]
  9. VITAMIN B [Concomitant]
  10. VITAMIN E [Concomitant]
  11. CALCIUM WITH VITAMIN D [Concomitant]
  12. LECITHIN [Concomitant]
  13. BETACAROTENE [Concomitant]
  14. FOSAMAX [Concomitant]
     Dates: start: 20061011
  15. TYLENOL [Concomitant]
  16. SULFASALAZINE [Concomitant]
     Dates: start: 20060830, end: 20070601
  17. SULFASALAZINE [Concomitant]

REACTIONS (2)
  - PHOTOSENSITIVITY REACTION [None]
  - SYSTEMIC LUPUS ERYTHEMATOSUS [None]
